FAERS Safety Report 15745794 (Version 1)
Quarter: 2018Q4

REPORT INFORMATION
  Report Type: Spontaneous
  Country: US (occurrence: US)
  Receive Date: 20181220
  Receipt Date: 20181220
  Transmission Date: 20190205
  Serious: Yes (Hospitalization)
  Sender: FDA-Public Use
  Company Number: US-ASTRAZENECA-2018SF67044

PATIENT
  Sex: Male
  Weight: 66.8 kg

DRUGS (5)
  1. CRESTOR [Suspect]
     Active Substance: ROSUVASTATIN CALCIUM
     Route: 048
  2. LOPID [Suspect]
     Active Substance: GEMFIBROZIL
     Indication: HYPERTRIGLYCERIDAEMIA
     Route: 065
  3. LOPID [Suspect]
     Active Substance: GEMFIBROZIL
     Indication: HYPERCHOLESTEROLAEMIA
     Dosage: GENERIC
     Route: 065
     Dates: start: 1992
  4. LOPID [Suspect]
     Active Substance: GEMFIBROZIL
     Indication: HYPERTRIGLYCERIDAEMIA
     Dosage: GENERIC
     Route: 065
     Dates: start: 1992
  5. LOPID [Suspect]
     Active Substance: GEMFIBROZIL
     Indication: HYPERCHOLESTEROLAEMIA
     Route: 065

REACTIONS (5)
  - Product dose omission [Unknown]
  - Product use issue [Unknown]
  - Blood triglycerides abnormal [Unknown]
  - Drug ineffective [Unknown]
  - Pancreatitis [Unknown]
